FAERS Safety Report 4521109-8 (Version None)
Quarter: 2004Q4

REPORT INFORMATION
  Report Type: 
  Country: None (occurrence: None)
  Receive Date: 20041203
  Receipt Date: 20041125
  Transmission Date: 20050328
  Serious: Yes (Life-Threatening, Hospitalization)
  Sender: FDA-Public Use
  Company Number: GBWYE223122NOV04

PATIENT
  Age: 30 Year
  Sex: Female

DRUGS (4)
  1. ADVIL [Suspect]
     Dosage: ORAL
     Route: 048
  2. BEGRIVAC (INFLUENZA VIRUS VACCINE POLYVALENT, INJECTION, 0) [Suspect]
     Dosage: SC; VACCINATE DATE:
     Route: 058
  3. TRIMETHOPRIM (TIMETHRORIM,  , 0) [Suspect]
     Dosage: ORAL
     Route: 048
  4. ORAL CONTRACEPTIVE NOS (ORAL CONTRACEPTIVE NOS) [Concomitant]

REACTIONS (2)
  - HAEMODIALYSIS [None]
  - RENAL FAILURE ACUTE [None]
